FAERS Safety Report 7415125-6 (Version None)
Quarter: 2011Q2

REPORT INFORMATION
  Report Type: 
  Country: None (occurrence: None)
  Receive Date: 20110414
  Receipt Date: 20110404
  Transmission Date: 20111010
  Serious: Yes (Other)
  Sender: FDA-Public Use
  Company Number: PHHY2011US28417

PATIENT
  Sex: Female

DRUGS (2)
  1. METOPROLOL TARTRATE [Concomitant]
  2. DIOVAN [Suspect]
     Dosage: 160 MG, ONCE DAILY

REACTIONS (4)
  - ANEURYSM [None]
  - THROMBOSIS [None]
  - MYOCARDIAL INFARCTION [None]
  - OCULAR DISCOMFORT [None]
